FAERS Safety Report 7657320-7 (Version None)
Quarter: 2011Q3

REPORT INFORMATION
  Report Type: 
  Country: None (occurrence: None)
  Receive Date: 20110804
  Receipt Date: 20110726
  Transmission Date: 20111222
  Serious: Yes (Other)
  Sender: FDA-Public Use
  Company Number: PHHY2011US47854

PATIENT
  Sex: Female
  Weight: 56.689 kg

DRUGS (13)
  1. ACIDOPHILUS [Concomitant]
     Dosage: UNK
  2. MULTI-VITAMINS [Concomitant]
     Dosage: UNK
  3. NITROFURANTOIN [Concomitant]
     Dosage: 100 MG, UNK
  4. COQ10 [Concomitant]
     Dosage: 100 MG, UNK
  5. CYMBALTA [Concomitant]
     Dosage: 30 MG, UNK
  6. GILENYA [Suspect]
     Indication: MULTIPLE SCLEROSIS
     Dosage: 0.5 MG, QD
     Route: 048
  7. MAGNESIUM [Concomitant]
     Dosage: 30 MG, UNK
  8. VITAMIN D [Concomitant]
     Dosage: UNK
  9. LOVAZA [Concomitant]
     Dosage: 1000 MG, UNK
  10. VITAMIN E [Concomitant]
     Dosage: 1000 U, UNK
  11. FLAXSEED OIL [Concomitant]
     Dosage: UNK
  12. GABAPENTIN [Concomitant]
     Dosage: 100 MG, UNK
  13. CALCIUM ACETATE [Concomitant]
     Dosage: 500 UNK, UNK

REACTIONS (3)
  - ABDOMINAL PAIN [None]
  - RESPIRATORY TRACT INFECTION [None]
  - COUGH [None]
